FAERS Safety Report 8574705 (Version 2)
Quarter: 2013Q2

REPORT INFORMATION
  Report Type: Spontaneous
  Country: US (occurrence: US)
  Receive Date: 20120522
  Receipt Date: 20130604
  Transmission Date: 20140414
  Serious: Yes (Other)
  Sender: FDA-Public Use
  Company Number: US-ASTRAZENECA-2012SE06376

PATIENT
  Age: 47 Year
  Sex: Female

DRUGS (3)
  1. PRILOSEC [Suspect]
     Route: 048
  2. PRILOSEC [Suspect]
     Dosage: DAILY OR TWO TIMES A DAY
     Route: 048
  3. NEXIUM [Suspect]
     Route: 048

REACTIONS (3)
  - Thrombosis [Unknown]
  - Gastrooesophageal reflux disease [Unknown]
  - Drug ineffective [Unknown]
